FAERS Safety Report 21486323 (Version 1)
Quarter: 2022Q4

REPORT INFORMATION
  Report Type: Spontaneous
  Country: US (occurrence: None)
  Receive Date: 20221019
  Receipt Date: 20221019
  Transmission Date: 20230113
  Serious: Yes (Hospitalization, Disabling)
  Sender: FDA-Public Use
  Company Number: None

PATIENT
  Age: 50 Year
  Sex: Female

DRUGS (20)
  1. AJOVY [Suspect]
     Active Substance: FREMANEZUMAB-VFRM
     Indication: Migraine
     Dosage: FREQUENCY : MONTHLY;?
     Route: 058
     Dates: start: 20220920
  2. IBRANCE [Concomitant]
     Active Substance: PALBOCICLIB
  3. TOPIRAMATE [Concomitant]
     Active Substance: TOPIRAMATE
  4. ANASTROZOLE [Concomitant]
     Active Substance: ANASTROZOLE
  5. DIAZEPAM [Concomitant]
     Active Substance: DIAZEPAM
  6. PYRIDOXINE [Concomitant]
     Active Substance: PYRIDOXINE
  7. ALBUTEROL [Concomitant]
     Active Substance: ALBUTEROL
  8. ALLEGRA ALLERGY [Concomitant]
     Active Substance: FEXOFENADINE HYDROCHLORIDE
  9. CALCIUM CHEWABLE [Concomitant]
  10. CITALOPRAM [Concomitant]
     Active Substance: CITALOPRAM HYDROBROMIDE
  11. EMLA [Concomitant]
     Active Substance: LIDOCAINE\PRILOCAINE
  12. EPIPEN [Concomitant]
     Active Substance: EPINEPHRINE
  13. FLOVENT HFA INH [Concomitant]
  14. HYDROXYZINE HYDROCHLORIDE [Concomitant]
     Active Substance: HYDROXYZINE HYDROCHLORIDE
  15. NASONEX [Concomitant]
     Active Substance: MOMETASONE FUROATE
  16. HERBALS\TURMERIC [Concomitant]
     Active Substance: HERBALS\TURMERIC
  17. HAIR SKIN AND NAILS FORMULA [Concomitant]
  18. MELATONIN [Concomitant]
     Active Substance: MELATONIN
  19. VITAMIN B12 [Concomitant]
     Active Substance: CYANOCOBALAMIN
  20. VITAMIN D3 [Concomitant]
     Active Substance: CHOLECALCIFEROL

REACTIONS (4)
  - Chest pain [None]
  - Trismus [None]
  - Fatigue [None]
  - Depressed level of consciousness [None]

NARRATIVE: CASE EVENT DATE: 20221011
